FAERS Safety Report 8075495-5 (Version None)
Quarter: 2012Q1

REPORT INFORMATION
  Report Type: 
  Country: None (occurrence: None)
  Receive Date: 20120127
  Receipt Date: 20120118
  Transmission Date: 20120608
  Serious: Yes (Life-Threatening, Hospitalization)
  Sender: FDA-Public Use
  Company Number: FR-VERTEX PHARMACEUTICALS INC.-000000000000000105

PATIENT
  Age: 65 Year
  Sex: Male

DRUGS (5)
  1. RIBAVIRIN [Concomitant]
     Indication: HEPATITIS C
     Dates: start: 20070101
  2. EPOETIN NOS [Concomitant]
  3. INCIVO (TELAPREVIR) [Suspect]
     Indication: HEPATITIS C
     Dosage: DOSAGE FORM: TABLET
     Dates: end: 20120107
  4. INTERFERON [Concomitant]
  5. BETA BLOCKER AGENT [Concomitant]

REACTIONS (2)
  - PULMONARY FIBROSIS [None]
  - GENERAL PHYSICAL HEALTH DETERIORATION [None]
